FAERS Safety Report 17803775 (Version 2)
Quarter: 2020Q2

REPORT INFORMATION
  Report Type: Report from Study
  Country: SE (occurrence: SE)
  Receive Date: 20200519
  Receipt Date: 20200605
  Transmission Date: 20200714
  Serious: Yes (Hospitalization)
  Sender: FDA-Public Use
  Company Number: SE-ACTELION-A-CH2019-191286

PATIENT
  Age: 73 Year
  Sex: Male
  Weight: 103 kg

DRUGS (16)
  1. DIGOXIN. [Concomitant]
     Active Substance: DIGOXIN
     Dosage: UNK
     Route: 048
     Dates: start: 20150224
  2. CYANOCOBALAMIN. [Concomitant]
     Active Substance: CYANOCOBALAMIN
     Dosage: UNK
     Route: 048
     Dates: start: 20101210
  3. WARFARIN [Concomitant]
     Active Substance: WARFARIN
     Dosage: UNK
     Route: 048
     Dates: start: 20150224
  4. INSULIN LISPRO [Concomitant]
     Active Substance: INSULIN LISPRO
     Indication: DIABETES MELLITUS
     Dosage: UNK
     Route: 058
     Dates: start: 20140131
  5. OPSUMIT [Suspect]
     Active Substance: MACITENTAN
     Dosage: 10 MG, QD
     Route: 048
     Dates: start: 20190604
  6. FUROSEMID [Concomitant]
     Active Substance: FUROSEMIDE
     Dosage: UNK
     Route: 048
     Dates: start: 20170628
  7. OXYGEN. [Concomitant]
     Active Substance: OXYGEN
     Indication: OXYGEN SATURATION DECREASED
     Dosage: UNK
     Route: 050
     Dates: start: 20180927
  8. OPSUMIT [Suspect]
     Active Substance: MACITENTAN
     Indication: PULMONARY ARTERIAL HYPERTENSION
     Dosage: 10 MG, QD
     Route: 048
     Dates: start: 20181009, end: 20190402
  9. ADCIRCA [Concomitant]
     Active Substance: TADALAFIL
     Dosage: 40 MG, QD
     Dates: start: 20181009
  10. TERBUTALIN [Concomitant]
     Active Substance: TERBUTALINE
     Dosage: UNK
     Route: 055
     Dates: start: 20130114
  11. SPIRONOLACTON [Concomitant]
     Active Substance: SPIRONOLACTONE
     Dosage: UNK
     Route: 048
     Dates: start: 20150224
  12. FOLIC ACID. [Concomitant]
     Active Substance: FOLIC ACID
     Dosage: UNK
     Route: 048
     Dates: start: 20180329
  13. METFORMIN [Concomitant]
     Active Substance: METFORMIN HYDROCHLORIDE
     Indication: DIABETES MELLITUS
     Dosage: UNK
     Route: 048
     Dates: start: 20140131
  14. INNOVAIR [Concomitant]
     Active Substance: BECLOMETHASONE DIPROPIONATE\FORMOTEROL
     Indication: RESPIRATORY DISORDER
     Dosage: UNK
     Route: 055
     Dates: start: 20140619
  15. EMPAGLIFLOZIN [Concomitant]
     Active Substance: EMPAGLIFLOZIN
     Indication: DIABETES MELLITUS
     Dosage: UNK
     Route: 048
     Dates: start: 20170518
  16. ATORVASTATIN [Concomitant]
     Active Substance: ATORVASTATIN
     Indication: HYPERLIPIDAEMIA
     Dosage: UNK
     Route: 048
     Dates: start: 20111007

REACTIONS (5)
  - Appendicitis [Not Recovered/Not Resolved]
  - Abscess drainage [Unknown]
  - Weight increased [Unknown]
  - Iron deficiency anaemia [Recovered/Resolved]
  - Gastric polyps [Unknown]

NARRATIVE: CASE EVENT DATE: 20190417
